FAERS Safety Report 10977563 (Version 2)
Quarter: 2015Q1

REPORT INFORMATION
  Report Type: Spontaneous
  Country: US (occurrence: None)
  Receive Date: 20150330
  Receipt Date: 20150330
  Transmission Date: 20150721
  Serious: Yes (Other)
  Sender: FDA-Public Use
  Company Number: ADR-2015-00591

PATIENT
  Age: 44 Year
  Sex: Male

DRUGS (1)
  1. BACLOFEN INTRATHECAL [Suspect]
     Active Substance: BACLOFEN
     Indication: MUSCLE SPASTICITY
     Dosage: 424.7 MCG/DAY
     Dates: start: 20150204

REACTIONS (14)
  - Skin discolouration [None]
  - Mobility decreased [None]
  - Hemiparesis [None]
  - Dizziness [None]
  - Hypoaesthesia [None]
  - Unevaluable event [None]
  - Musculoskeletal stiffness [None]
  - Fear [None]
  - Gait disturbance [None]
  - Glassy eyes [None]
  - Device issue [None]
  - Balance disorder [None]
  - Movement disorder [None]
  - Therapeutic response changed [None]

NARRATIVE: CASE EVENT DATE: 20140204
